FAERS Safety Report 5020531-3 (Version None)
Quarter: 2006Q2

REPORT INFORMATION
  Report Type: 
  Country: None (occurrence: None)
  Receive Date: 20060607
  Receipt Date: 20060607
  Transmission Date: 20061013
  Serious: Yes (Hospitalization)
  Sender: FDA-Public Use
  Company Number: None

PATIENT
  Age: 56 Year
  Sex: Male
  Weight: 64.8644 kg

DRUGS (2)
  1. SUCCINYLCHOLINE [Suspect]
     Indication: INTUBATION
     Dosage: 100MG
     Dates: start: 20060210, end: 20060210
  2. SUCCINYLCHOLINE [Suspect]
     Indication: MUSCLE SPASMS
     Dosage: 100MG
     Dates: start: 20060210, end: 20060210

REACTIONS (5)
  - DELAYED RECOVERY FROM ANAESTHESIA [None]
  - MUSCLE TWITCHING [None]
  - POST PROCEDURAL COMPLICATION [None]
  - PSEUDOCHOLINESTERASE DEFICIENCY [None]
  - THERAPY NON-RESPONDER [None]
